FAERS Safety Report 5902777-2 (Version None)
Quarter: 2008Q3

REPORT INFORMATION
  Report Type: 
  Country: None (occurrence: None)
  Receive Date: 20080930
  Receipt Date: 20080919
  Transmission Date: 20090109
  Serious: Yes (Death)
  Sender: FDA-Public Use
  Company Number: US-BAYER-200833955NA

PATIENT
  Sex: Male

DRUGS (3)
  1. BETASERON [Suspect]
     Indication: DRUG USE FOR UNKNOWN INDICATION
  2. COPAXONE (GLATIRAMER) [Concomitant]
  3. AVONEX [Concomitant]

REACTIONS (2)
  - DEATH [None]
  - DYSPNOEA [None]
